FAERS Safety Report 18695509 (Version 1)
Quarter: 2021Q1

REPORT INFORMATION
  Report Type: Spontaneous
  Country: CN (occurrence: CN)
  Receive Date: 20210104
  Receipt Date: 20210104
  Transmission Date: 20210419
  Serious: Yes (Other)
  Sender: FDA-Public Use
  Company Number: CN-AMNEAL PHARMACEUTICALS-2020-AMRX-04085

PATIENT
  Age: 37 Year
  Sex: Male

DRUGS (5)
  1. VORICONAZOLE. [Suspect]
     Active Substance: VORICONAZOLE
     Indication: ASPERGILLUS INFECTION
     Dosage: 200 MILLIGRAM, EVERY 12HR
     Route: 048
     Dates: start: 2019, end: 2019
  2. VORICONAZOLE. [Suspect]
     Active Substance: VORICONAZOLE
     Dosage: 200 MILLIGRAM, EVERY 12HR (ON DAY 37)
     Route: 048
     Dates: start: 2019, end: 2019
  3. VORICONAZOLE. [Suspect]
     Active Substance: VORICONAZOLE
     Dosage: 150 MILLIGRAM, EVERY 12HR (ON DAY 60)
     Route: 048
     Dates: start: 2019, end: 2019
  4. VORICONAZOLE. [Suspect]
     Active Substance: VORICONAZOLE
     Dosage: 300 MILLIGRAM, EVERY 12HR
     Route: 048
     Dates: start: 2019, end: 2019
  5. VORICONAZOLE. [Suspect]
     Active Substance: VORICONAZOLE
     Dosage: 175 MILLIGRAM, EVERY 12HR (ON DAY 77)
     Route: 048
     Dates: start: 2019, end: 2019

REACTIONS (2)
  - Urinary bladder rupture [Recovered/Resolved]
  - Cystitis haemorrhagic [Recovered/Resolved]

NARRATIVE: CASE EVENT DATE: 2019
